FAERS Safety Report 24740891 (Version 1)
Quarter: 2024Q4

REPORT INFORMATION
  Report Type: Spontaneous
  Country: JP (occurrence: JP)
  Receive Date: 20241217
  Receipt Date: 20241217
  Transmission Date: 20250115
  Serious: Yes (Death, Other)
  Sender: TOLMAR
  Company Number: JP-TOLMAR, INC.-24JP054823

PATIENT
  Age: 69 Year
  Sex: Male

DRUGS (6)
  1. ELIGARD [Suspect]
     Active Substance: LEUPROLIDE ACETATE
     Indication: Prostate cancer
     Dosage: 22.5 MILLIGRAM ONCE EVERY 24 WEEKS
     Route: 058
  2. ELIGARD [Suspect]
     Active Substance: LEUPROLIDE ACETATE
     Indication: Prostate cancer
     Dosage: UNK
  3. DOCETAXEL [Suspect]
     Active Substance: DOCETAXEL
     Indication: Prostate cancer
     Dosage: UNK
  4. CABAZITAXEL [Suspect]
     Active Substance: CABAZITAXEL
     Indication: Metastases to bone
     Dosage: UNK
  5. PEMBROLIZUMAB [Suspect]
     Active Substance: PEMBROLIZUMAB
     Indication: Prostate cancer
     Dosage: UNK
  6. RADIATION THERAPY [Suspect]
     Active Substance: RADIATION THERAPY
     Indication: Prostate cancer
     Dosage: UNK

REACTIONS (4)
  - Multiple organ dysfunction syndrome [Fatal]
  - Myocarditis [Unknown]
  - Arrhythmic storm [Unknown]
  - Cardiogenic shock [Unknown]
